FAERS Safety Report 15160501 (Version 1)
Quarter: 2018Q3

REPORT INFORMATION
  Report Type: Spontaneous
  Country: US (occurrence: US)
  Receive Date: 20180718
  Receipt Date: 20180718
  Transmission Date: 20181010
  Serious: No
  Sender: FDA-Public Use
  Company Number: US-009507513-1106USA00846

PATIENT
  Age: 29 Year
  Sex: Female

DRUGS (4)
  1. TENOFOVIR DISOPROXIL FUMARATE. [Suspect]
     Active Substance: TENOFOVIR DISOPROXIL FUMARATE
  2. ISENTRESS [Suspect]
     Active Substance: RALTEGRAVIR POTASSIUM
     Dosage: 800 (UNSPECIFIED UNIT), UNK
     Route: 048
  3. ZIDOVUDINE. [Suspect]
     Active Substance: ZIDOVUDINE
     Dosage: 2 (UNSPECIFIED UNIT), QD
     Route: 042
  4. EMTRICITABINE [Suspect]
     Active Substance: EMTRICITABINE

REACTIONS (2)
  - Maternal exposure during pregnancy [Recovered/Resolved]
  - No adverse event [Unknown]
